FAERS Safety Report 20552917 (Version 1)
Quarter: 2022Q1

REPORT INFORMATION
  Report Type: Spontaneous
  Country: US (occurrence: US)
  Receive Date: 20220304
  Receipt Date: 20220304
  Transmission Date: 20220424
  Serious: No
  Sender: FDA-Public Use
  Company Number: US-drreddys-SPO/USA/22/0147265

PATIENT
  Age: 77 Year
  Sex: Female
  Weight: 81 kg

DRUGS (2)
  1. HABITROL [Suspect]
     Active Substance: NICOTINE
     Indication: Tobacco user
     Route: 062
     Dates: end: 20220216
  2. VITAMINS [Concomitant]
     Active Substance: VITAMINS
     Indication: Product used for unknown indication

REACTIONS (4)
  - Application site pruritus [Unknown]
  - Application site irritation [Unknown]
  - Application site rash [Unknown]
  - Expired product administered [Unknown]

NARRATIVE: CASE EVENT DATE: 20220201
